FAERS Safety Report 17646256 (Version 1)
Quarter: 2020Q2

REPORT INFORMATION
  Report Type: Spontaneous
  Country: GB (occurrence: GB)
  Receive Date: 20200408
  Receipt Date: 20200408
  Transmission Date: 20200713
  Serious: Yes (Hospitalization)
  Sender: FDA-Public Use
  Company Number: GB-TEVA-2020-GB-1221145

PATIENT
  Age: 67 Year
  Sex: Male

DRUGS (4)
  1. LERCANIDIPINE [Concomitant]
     Active Substance: LERCANIDIPINE
     Dosage: 20 MG
  2. DEXAMETHASONE. [Suspect]
     Active Substance: DEXAMETHASONE
     Dosage: 2MG TWICE A DAY UNTIL 29/02, 2MG ONE A DAY FROM 01/03
     Route: 048
     Dates: start: 20200301
  3. DEXAMETHASONE. [Suspect]
     Active Substance: DEXAMETHASONE
     Dosage: 2MG TWICE A DAY UNTIL 29/02, 2MG ONE A DAY FROM 01/03
     Route: 048
     Dates: start: 20200220, end: 20200229
  4. OMEPRAZOLE. [Concomitant]
     Active Substance: OMEPRAZOLE
     Dosage: 20 MG
     Dates: start: 20200220

REACTIONS (2)
  - Abnormal dreams [Recovered/Resolved]
  - Insomnia [Recovered/Resolved]

NARRATIVE: CASE EVENT DATE: 20200224
